FAERS Safety Report 4452004-0 (Version None)
Quarter: 2004Q3

REPORT INFORMATION
  Report Type: 
  Country: None (occurrence: None)
  Receive Date: 20040915
  Receipt Date: 20040915
  Transmission Date: 20050211
  Serious: Yes (Hospitalization)
  Sender: FDA-Public Use
  Company Number: None

PATIENT
  Age: 76 Year
  Sex: Male
  Weight: 48.8 kg

DRUGS (8)
  1. DIGOXIN [Suspect]
     Indication: CORONARY ARTERY DISEASE
  2. ZOCOR [Concomitant]
  3. LISINOPRIL [Concomitant]
  4. LASIX [Concomitant]
  5. ASPIRIN [Concomitant]
  6. GLIPIZIDE [Concomitant]
  7. PLAVIX [Concomitant]
  8. COMBIVENT [Concomitant]

REACTIONS (3)
  - DECREASED APPETITE [None]
  - NAUSEA [None]
  - VOMITING [None]
